FAERS Safety Report 13075675 (Version 1)
Quarter: 2016Q4

REPORT INFORMATION
  Report Type: Report from Study
  Country: US (occurrence: US)
  Receive Date: 20161230
  Receipt Date: 20161230
  Transmission Date: 20170207
  Serious: Yes (Other)
  Sender: FDA-Public Use
  Company Number: US-ALEXION PHARMACEUTICALS INC-A201610307

PATIENT
  Sex: Female

DRUGS (1)
  1. SOLIRIS [Suspect]
     Active Substance: ECULIZUMAB
     Indication: HAEMOLYTIC URAEMIC SYNDROME
     Route: 042

REACTIONS (4)
  - Headache [Recovered/Resolved]
  - Fall [Recovered/Resolved]
  - Pain in extremity [Recovered/Resolved]
  - Pharyngeal haemorrhage [Recovered/Resolved]

NARRATIVE: CASE EVENT DATE: 20161130
